FAERS Safety Report 19191557 (Version 1)
Quarter: 2021Q2

REPORT INFORMATION
  Report Type: Spontaneous
  Country: US (occurrence: US)
  Receive Date: 20210429
  Receipt Date: 20210429
  Transmission Date: 20210717
  Serious: Yes (Other)
  Sender: FDA-Public Use
  Company Number: US-CIPLA LTD.-2021US03080

PATIENT

DRUGS (2)
  1. AZACITIDINE. [Suspect]
     Active Substance: AZACITIDINE
     Dosage: 24 MG/M2 FOR 5 DAYS AND REPEATED EVERY 30 DAYS
     Route: 042
  2. AZACITIDINE. [Suspect]
     Active Substance: AZACITIDINE
     Indication: ACUTE MYELOID LEUKAEMIA
     Dosage: 36 MILLIGRAM/SQ. METER FOR 5 DAYS, REPEATED EVERY 30 DAYS
     Route: 042

REACTIONS (5)
  - Pneumatosis intestinalis [Unknown]
  - Cytopenia [Recovered/Resolved]
  - Abdominal discomfort [Unknown]
  - Pyrexia [Unknown]
  - Enterococcal bacteraemia [Unknown]
